FAERS Safety Report 9516094 (Version 1)
Quarter: 2013Q1

REPORT INFORMATION
  Report Type: Spontaneous
  Country: US (occurrence: None)
  Receive Date: 20130305
  Receipt Date: 20130305
  Transmission Date: 20140127
  Serious: Yes (Other)
  Sender: FDA-Public Use
  Company Number: 163-21880-12081438

PATIENT
  Age: 76 Year
  Sex: Male

DRUGS (6)
  1. REVLIMID [Suspect]
     Indication: MYELODYSPLASTIC SYNDROME
     Dosage: 5 MG, 21 IN 28 D,  PO
     Route: 048
     Dates: start: 20120120
  2. AMLODIPINE (AMLODIPINE) (UNKNOWN) [Concomitant]
  3. RAMIPRIL (RAMIPRIL) (UNKNOWN) [Concomitant]
  4. NADOLOL (NADOLOL) (UNKNOWN) [Concomitant]
  5. PLAVIX (CLOPIDOGREL SULFATE) (UNKNOWN) [Concomitant]
  6. ALTOPREV (LOVASTATIN) (UNKNOWN) [Concomitant]

REACTIONS (1)
  - Haemoglobin decreased [None]
